FAERS Safety Report 25658140 (Version 1)
Quarter: 2025Q3

REPORT INFORMATION
  Report Type: Spontaneous
  Country: JP (occurrence: JP)
  Receive Date: 20250808
  Receipt Date: 20250808
  Transmission Date: 20251021
  Serious: Yes (Other)
  Sender: MERCK SHARP & DOHME LLC
  Company Number: JP-009507513-2316189

PATIENT
  Age: 64 Year
  Sex: Male

DRUGS (1)
  1. KEYTRUDA [Suspect]
     Active Substance: PEMBROLIZUMAB
     Indication: Lung carcinoma cell type unspecified recurrent
     Route: 065

REACTIONS (3)
  - Seronegative arthritis [Unknown]
  - Hypoalbuminaemia [Unknown]
  - Radiotherapy to adrenal gland [Unknown]
